FAERS Safety Report 5601048-1 (Version None)
Quarter: 2008Q1

REPORT INFORMATION
  Report Type: 
  Country: None (occurrence: None)
  Receive Date: 20080122
  Receipt Date: 20080122
  Transmission Date: 20080703
  Serious: Yes (Other)
  Sender: FDA-Public Use
  Company Number: None

PATIENT
  Age: 28 Year
  Sex: Female
  Weight: 74.3899 kg

DRUGS (2)
  1. LUPRON DEPOT [Suspect]
     Indication: DYSMENORRHOEA
     Dosage: 3.75MG MONTHLY IM
     Route: 030
     Dates: start: 20071002, end: 20071002
  2. LUPRON DEPOT [Suspect]
     Indication: ENDOMETRIOSIS
     Dosage: 3.75MG MONTHLY IM
     Route: 030
     Dates: start: 20071002, end: 20071002

REACTIONS (14)
  - ABDOMINAL WALL DISORDER [None]
  - ACTIVITIES OF DAILY LIVING IMPAIRED [None]
  - ARTHRALGIA [None]
  - ARTHRITIS [None]
  - AUTOIMMUNE THYROIDITIS [None]
  - BLADDER DISORDER [None]
  - DRUG INEFFECTIVE [None]
  - ENDOMETRIOSIS [None]
  - GASTROINTESTINAL DISORDER [None]
  - LIGAMENT DISORDER [None]
  - LUPUS-LIKE SYNDROME [None]
  - MIGRAINE [None]
  - MYALGIA [None]
  - URETERAL DISORDER [None]
